FAERS Safety Report 7773001-3 (Version None)
Quarter: 2011Q3

REPORT INFORMATION
  Report Type: 
  Country: None (occurrence: None)
  Receive Date: 20110922
  Receipt Date: 20101129
  Transmission Date: 20111222
  Serious: No
  Sender: FDA-Public Use
  Company Number: US-ASTRAZENECA-2010SE56511

PATIENT
  Age: 55 Year
  Sex: Female
  Weight: 69.4 kg

DRUGS (4)
  1. VALIUM [Concomitant]
  2. SEROQUEL [Suspect]
     Indication: BIPOLAR I DISORDER
     Route: 048
     Dates: start: 20101008
  3. PRESTIQUE [Concomitant]
  4. SEROQUEL [Suspect]
     Indication: SLEEP DISORDER
     Route: 048
     Dates: start: 20101008

REACTIONS (3)
  - MENTAL DISORDER [None]
  - DRUG INEFFECTIVE [None]
  - INSOMNIA [None]
